FAERS Safety Report 8547862-4 (Version None)
Quarter: 2012Q3

REPORT INFORMATION
  Report Type: 
  Country: None (occurrence: None)
  Receive Date: 20120727
  Receipt Date: 20120627
  Transmission Date: 20120928
  Serious: No
  Sender: FDA-Public Use
  Company Number: US-ASTRAZENECA-2012SE43626

PATIENT
  Sex: Male

DRUGS (6)
  1. SINGULAIR [Concomitant]
  2. AMBIEN [Concomitant]
  3. CIALIS [Concomitant]
  4. CRESTOR [Suspect]
     Indication: BLOOD CHOLESTEROL INCREASED
     Dosage: 5 OR 10 MG
     Route: 048
     Dates: start: 20080101, end: 20120101
  5. LOVAZA [Concomitant]
  6. LERANTA [Concomitant]

REACTIONS (16)
  - MUSCULAR WEAKNESS [None]
  - ADVERSE EVENT [None]
  - HEPATIC ENZYME INCREASED [None]
  - GENERAL PHYSICAL HEALTH DETERIORATION [None]
  - ACTIVITIES OF DAILY LIVING IMPAIRED [None]
  - NAUSEA [None]
  - DIARRHOEA [None]
  - BRONCHITIS [None]
  - ABDOMINAL PAIN UPPER [None]
  - FATIGUE [None]
  - FEELING ABNORMAL [None]
  - HEADACHE [None]
  - SINUS DISORDER [None]
  - RASH [None]
  - ABNORMAL LOSS OF WEIGHT [None]
  - CONSTIPATION [None]
